FAERS Safety Report 7957532-9 (Version None)
Quarter: 2011Q4

REPORT INFORMATION
  Report Type: 
  Country: None (occurrence: None)
  Receive Date: 20111205
  Receipt Date: 20111130
  Transmission Date: 20120403
  Serious: Yes (Death)
  Sender: FDA-Public Use
  Company Number: US-GLAXOSMITHKLINE-A0956502A

PATIENT
  Age: 75 Year
  Sex: Male

DRUGS (4)
  1. ATGAM [Concomitant]
     Indication: APLASTIC ANAEMIA
  2. CORTICOSTEROIDS [Concomitant]
     Indication: APLASTIC ANAEMIA
  3. IMMUNE GLOBULIN INTRAVENOUS (HUMAN) [Concomitant]
     Indication: APLASTIC ANAEMIA
  4. PROMACTA [Suspect]
     Indication: APLASTIC ANAEMIA
     Dosage: 50MG PER DAY
     Dates: start: 20111025, end: 20111121

REACTIONS (1)
  - SEPSIS [None]
